FAERS Safety Report 5237623-6 (Version None)
Quarter: 2007Q1

REPORT INFORMATION
  Report Type: 
  Country: None (occurrence: None)
  Receive Date: 20070214
  Receipt Date: 20070201
  Transmission Date: 20070707
  Serious: Yes (Hospitalization)
  Sender: FDA-Public Use
  Company Number: PHNU2007DE00756

PATIENT
  Sex: Female

DRUGS (1)
  1. LAMISIL [Suspect]
     Indication: ONYCHOMYCOSIS
     Route: 048
     Dates: end: 20060101

REACTIONS (5)
  - DRUG INEFFECTIVE [None]
  - GASTROINTESTINAL CARCINOMA [None]
  - HEPATOCELLULAR DAMAGE [None]
  - INTESTINAL OPERATION [None]
  - NUCLEAR MAGNETIC RESONANCE IMAGING ABNORMAL [None]
